FAERS Safety Report 7268778-X (Version None)
Quarter: 2011Q1

REPORT INFORMATION
  Report Type: 
  Country: None (occurrence: None)
  Receive Date: 20110201
  Receipt Date: 20110119
  Transmission Date: 20110831
  Serious: Yes (Hospitalization, Other)
  Sender: FDA-Public Use
  Company Number: PHHY2010US80889

PATIENT
  Sex: Female

DRUGS (5)
  1. AFINITOR [Suspect]
     Indication: RENAL CELL CARCINOMA
     Dosage: 10 MG, QD
     Route: 048
     Dates: start: 20101008
  2. DOCETAXEL [Concomitant]
  3. BEVACIZUMAB [Concomitant]
  4. DILAUDID [Concomitant]
     Route: 048
  5. MS CONTIN [Concomitant]
     Route: 048

REACTIONS (3)
  - PAIN [None]
  - SMALL INTESTINAL OBSTRUCTION [None]
  - METASTASES TO BONE [None]
